FAERS Safety Report 8075195-1 (Version None)
Quarter: 2012Q1

REPORT INFORMATION
  Report Type: 
  Country: None (occurrence: None)
  Receive Date: 20120127
  Receipt Date: 20120123
  Transmission Date: 20120608
  Serious: No
  Sender: FDA-Public Use
  Company Number: US-PFIZER INC-2011289676

PATIENT
  Sex: Female

DRUGS (1)
  1. COLESTID [Suspect]
     Dosage: UNK , UNK

REACTIONS (1)
  - GASTROINTESTINAL DISORDER [None]
